FAERS Safety Report 18924274 (Version 4)
Quarter: 2021Q2

REPORT INFORMATION
  Report Type: Report from Study
  Country: US (occurrence: US)
  Receive Date: 20210222
  Receipt Date: 20210616
  Transmission Date: 20210717
  Serious: Yes (Hospitalization, Other)
  Sender: FDA-Public Use
  Company Number: US-TAKEDA-2021TUS011158

PATIENT
  Age: 53 Year
  Sex: Female
  Weight: 59 kg

DRUGS (20)
  1. SEROQUEL [Concomitant]
     Active Substance: QUETIAPINE FUMARATE
  2. VITAMIN C ACID [Concomitant]
     Active Substance: ASCORBIC ACID
  3. CARBAMAZEPINE. [Concomitant]
     Active Substance: CARBAMAZEPINE
  4. LEVOTHYROXINE. [Concomitant]
     Active Substance: LEVOTHYROXINE
     Route: 065
  5. HUMAN NORMAL IMMUNOGLOBULIN; LIQUID [Suspect]
     Active Substance: HUMAN IMMUNOGLOBULIN G
     Indication: IMMUNODEFICIENCY COMMON VARIABLE
     Dosage: 12 GRAM, 1/WEEK
     Route: 058
     Dates: start: 20130807
  6. FLUTICASONE. [Concomitant]
     Active Substance: FLUTICASONE
  7. VENLAFAXINE [Concomitant]
     Active Substance: VENLAFAXINE HYDROCHLORIDE
  8. ACETAMINOPHEN. [Concomitant]
     Active Substance: ACETAMINOPHEN
  9. TRILEPTAL [Concomitant]
     Active Substance: OXCARBAZEPINE
  10. AVELOX [Concomitant]
     Active Substance: MOXIFLOXACIN HYDROCHLORIDE
  11. HUMAN NORMAL IMMUNOGLOBULIN; LIQUID [Suspect]
     Active Substance: HUMAN IMMUNOGLOBULIN G
     Dosage: 123 GRAM, 1/WEEK
     Route: 058
     Dates: start: 20130807
  12. BUSPIRONE [Concomitant]
     Active Substance: BUSPIRONE HYDROCHLORIDE
  13. DIPHENHYDRAMINE. [Concomitant]
     Active Substance: DIPHENHYDRAMINE
  14. BETAMETHASONE. [Concomitant]
     Active Substance: BETAMETHASONE
  15. EPINEPHRINE. [Concomitant]
     Active Substance: EPINEPHRINE
  16. VITAMINS NOS [Concomitant]
     Active Substance: VITAMINS
  17. GEODON [Concomitant]
     Active Substance: ZIPRASIDONE HYDROCHLORIDE\ZIPRASIDONE MESYLATE
  18. IBUPROFEN ABECE [Concomitant]
  19. LORATADINE. [Concomitant]
     Active Substance: LORATADINE
  20. METAMUCIL [Concomitant]
     Active Substance: PLANTAGO SEED

REACTIONS (4)
  - Wound infection [Unknown]
  - Decubitus ulcer [Unknown]
  - Pneumonia [Unknown]
  - Haemorrhage [Unknown]

NARRATIVE: CASE EVENT DATE: 202103
